FAERS Safety Report 6190079-1 (Version None)
Quarter: 2009Q2

REPORT INFORMATION
  Report Type: 
  Country: None (occurrence: None)
  Receive Date: 20090514
  Receipt Date: 20090303
  Transmission Date: 20091009
  Serious: No
  Sender: FDA-Public Use
  Company Number: US-BAYER-200910719BCC

PATIENT
  Age: 54 Year
  Sex: Female
  Weight: 82 kg

DRUGS (5)
  1. ALEVE (CAPLET) [Suspect]
     Indication: PAIN IN EXTREMITY
     Route: 048
     Dates: start: 20090101, end: 20090101
  2. ALEVE (CAPLET) [Suspect]
     Dosage: AT LEAST 1 ALEVE DAILY
     Route: 048
     Dates: start: 20090101, end: 20090301
  3. ALEVE [Suspect]
     Indication: PAIN IN EXTREMITY
  4. INSULIN [Concomitant]
     Indication: DIABETES MELLITUS
     Route: 065
  5. DIABETES MEDICATION [Concomitant]
     Indication: DIABETES MELLITUS
     Route: 065

REACTIONS (5)
  - BLISTER [None]
  - ERYTHEMA [None]
  - PRURITUS [None]
  - RASH MACULAR [None]
  - URTICARIA [None]
